FAERS Safety Report 4594315-4 (Version None)
Quarter: 2005Q1

REPORT INFORMATION
  Report Type: 
  Country: None (occurrence: None)
  Receive Date: 20050223
  Receipt Date: 20050210
  Transmission Date: 20050727
  Serious: Yes (Other)
  Sender: FDA-Public Use
  Company Number: 2005029618

PATIENT
  Age: 74 Year
  Sex: Male
  Weight: 65.7716 kg

DRUGS (15)
  1. LIPITOR [Suspect]
     Indication: BLOOD CHOLESTEROL INCREASED
     Dosage: 20 MG (20 MG, 1 IN 1 D)
  2. NICOTINIC ACID [Concomitant]
  3. CARVEDILOL [Concomitant]
  4. PHENYTOIN SODIUM [Concomitant]
  5. VITAMINS (VITAMINS) [Concomitant]
  6. CALCIUM CITRATE (CALCIUM CITRATE) [Concomitant]
  7. DOXAZOSIN MESYLATE [Concomitant]
  8. SERTRALINE HCL [Concomitant]
  9. DONEPEZIL HCL [Concomitant]
  10. ASPIRIN [Concomitant]
  11. DIGOXIN [Concomitant]
  12. VALSARTAN (VALSARTAN) [Concomitant]
  13. ZOLPIDEM TARTRATE [Concomitant]
  14. ALPRAZOLAM [Concomitant]
  15. VICODIN [Concomitant]

REACTIONS (8)
  - BLOOD CHOLESTEROL INCREASED [None]
  - BLOOD TRIGLYCERIDES INCREASED [None]
  - BURNING SENSATION [None]
  - HYPOAESTHESIA [None]
  - MYELODYSPLASTIC SYNDROME [None]
  - NEUROPATHY PERIPHERAL [None]
  - PAIN IN EXTREMITY [None]
  - VIRAL INFECTION [None]
